FAERS Safety Report 23427557 (Version 2)
Quarter: 2024Q1

REPORT INFORMATION
  Report Type: Other
  Country: US (occurrence: None)
  Receive Date: 20240122
  Receipt Date: 20240228
  Transmission Date: 20240410
  Serious: Yes (Death, Other)
  Sender: FDA-Public Use
  Company Number: US-ROCHE-3490702

PATIENT
  Age: 72 Year
  Sex: Male
  Weight: 110.32 kg

DRUGS (11)
  1. OCREVUS [Suspect]
     Active Substance: OCRELIZUMAB
     Indication: Primary progressive multiple sclerosis
     Dosage: 300 MG TWO WEEKS APART THEN 600 MG EVERY 6 MONTHS
     Route: 042
     Dates: start: 20171011, end: 20240110
  2. ALPHA LIPOIC ACID [Concomitant]
     Active Substance: .ALPHA.-LIPOIC ACID
  3. ELAVIL [AMITRIPTYLINE] [Concomitant]
  4. PREVAGEN [APOAEQUORIN] [Concomitant]
  5. ASCORBIC ACID [Concomitant]
     Active Substance: ASCORBIC ACID
  6. ASPIRIN [Concomitant]
     Active Substance: ASPIRIN
  7. BIOTIN [Concomitant]
     Active Substance: BIOTIN
  8. CHOLECALCIFEROL [Concomitant]
     Active Substance: CHOLECALCIFEROL
  9. DEXTROSE [Concomitant]
     Active Substance: DEXTROSE\DEXTROSE MONOHYDRATE
  10. MOTRIN [Concomitant]
     Active Substance: IBUPROFEN
  11. KENALOG [Concomitant]
     Active Substance: TRIAMCINOLONE ACETONIDE

REACTIONS (7)
  - Bursitis infective [Fatal]
  - Fall [Unknown]
  - Joint injury [Unknown]
  - Fatigue [Unknown]
  - Somnolence [Unknown]
  - Rib fracture [Not Recovered/Not Resolved]
  - Psoriasis [Not Recovered/Not Resolved]

NARRATIVE: CASE EVENT DATE: 20220119
